FAERS Safety Report 14835642 (Version 1)
Quarter: 2018Q2

REPORT INFORMATION
  Report Type: Spontaneous
  Country: SI (occurrence: SI)
  Receive Date: 20180502
  Receipt Date: 20180502
  Transmission Date: 20180711
  Serious: Yes (Hospitalization)
  Sender: FDA-Public Use
  Company Number: SI-ROCHE-2115238

PATIENT
  Age: 51 Year
  Sex: Female

DRUGS (1)
  1. KADCYLA [Suspect]
     Active Substance: ADO-TRASTUZUMAB EMTANSINE
     Indication: BREAST CANCER METASTATIC
     Dosage: 100 MG AND 160 MG POWDER FOR CONCENTRATE FOR SOLUTION FOR INFUSION?INFUSION AMPOULES, DRY VIALS/BOTT
     Route: 042
     Dates: start: 20170207, end: 20180403

REACTIONS (2)
  - Cystitis noninfective [Recovered/Resolved]
  - Haematuria [Recovered/Resolved]

NARRATIVE: CASE EVENT DATE: 20171223
